FAERS Safety Report 11169223 (Version 1)
Quarter: 2015Q2

REPORT INFORMATION
  Report Type: Spontaneous
  Country: IT (occurrence: IT)
  Receive Date: 20150605
  Receipt Date: 20150605
  Transmission Date: 20150821
  Serious: Yes (Other)
  Sender: FDA-Public Use
  Company Number: PHHY2015IT066143

PATIENT
  Age: 60 Year
  Sex: Male

DRUGS (2)
  1. ENOXAPARIN [Suspect]
     Active Substance: ENOXAPARIN
     Dosage: 2000 IU, QD
     Route: 058
  2. ENOXAPARIN [Suspect]
     Active Substance: ENOXAPARIN
     Indication: THROMBOPHLEBITIS
     Dosage: 6000 IU, QD
     Route: 058

REACTIONS (3)
  - Pain [Recovered/Resolved]
  - Headache [Recovered/Resolved]
  - Chest discomfort [Unknown]
